FAERS Safety Report 4378709-8 (Version None)
Quarter: 2004Q2

REPORT INFORMATION
  Report Type: 
  Country: None (occurrence: None)
  Receive Date: 20040610
  Receipt Date: 20040604
  Transmission Date: 20050107
  Serious: Yes (Hospitalization)
  Sender: FDA-Public Use
  Company Number: TCI2004A02155

PATIENT
  Age: 79 Year
  Sex: Male

DRUGS (7)
  1. LEUPROLIDE ACETATE [Suspect]
     Indication: PROSTATE CANCER
     Dosage: 11.25 MG (11.25 MG, 1 IN 12 WK)
     Route: 058
     Dates: start: 20041224
  2. LEUPLIN FOR INJECTION KIT 73.75 (LEUPROLIDE ACETATE) (INJECTION) [Suspect]
     Indication: PROSTATE CANCER
     Dosage: 3.75 MG (3.75 MG, 1 IN 28 D), SUBCUTANEOUS
     Route: 058
     Dates: start: 19961118, end: 20031126
  3. ANAFRANIL [Suspect]
     Indication: NEUROSIS
     Dosage: PER ORAL
     Route: 048
  4. DEPAS (ETIZOLAM) (PREPARATION FOR ORAL USE (NOS)) [Suspect]
     Indication: NEUROSIS
     Dosage: PER ORAL
     Route: 048
  5. HALOXAZOLAM (TABLETS) [Concomitant]
  6. BROMAZEPAM (PREPARATION FOR ORAL USE (NOS) [Concomitant]
  7. ALPRAZOLAM [Concomitant]

REACTIONS (1)
  - RHABDOMYOLYSIS [None]
